FAERS Safety Report 4876910-8 (Version None)
Quarter: 2005Q4

REPORT INFORMATION
  Report Type: 
  Country: None (occurrence: None)
  Receive Date: 20051206
  Receipt Date: 20050805
  Transmission Date: 20060501
  Serious: No
  Sender: FDA-Public Use
  Company Number: USA0507103064

PATIENT
  Age: 34 Year
  Sex: Male
  Weight: 101 kg

DRUGS (1)
  1. CYMBALTA [Suspect]
     Dosage: 60 MG
     Dates: start: 20050127

REACTIONS (1)
  - BLOOD PRESSURE INCREASED [None]
